FAERS Safety Report 22046519 (Version 1)
Quarter: 2023Q1

REPORT INFORMATION
  Report Type: Spontaneous
  Country: US (occurrence: US)
  Receive Date: 20230228
  Receipt Date: 20230228
  Transmission Date: 20230418
  Serious: No
  Sender: FDA-Public Use
  Company Number: US-BRISTOL-MYERS SQUIBB COMPANY-2023-029798

PATIENT
  Age: 77 Year
  Sex: Female
  Weight: 73.4 kg

DRUGS (1)
  1. REVLIMID [Suspect]
     Active Substance: LENALIDOMIDE
     Indication: Plasma cell myeloma
     Dosage: FREQUENCY: WAS ON A CONTINUOUS CYCLE, THEN 1 CAPSULES DAILY FOR 3 WEEKS AND 1 WEEK OFF. NOW BACK ON
     Route: 048
     Dates: start: 202101

REACTIONS (1)
  - Diarrhoea [Unknown]
